FAERS Safety Report 5508464-7 (Version None)
Quarter: 2007Q4

REPORT INFORMATION
  Report Type: 
  Country: None (occurrence: None)
  Receive Date: 20071031
  Receipt Date: 20070829
  Transmission Date: 20080405
  Serious: No
  Sender: FDA-Public Use
  Company Number: 200712861BWH

PATIENT
  Age: 15 Year
  Sex: Male

DRUGS (2)
  1. NEXAVAR [Suspect]
     Indication: HEPATIC NEOPLASM MALIGNANT
     Dosage: 400 MG, BID, ORAL; 200 MG, BID, ORAL
     Route: 048
     Dates: start: 20070818, end: 20070822
  2. NEXAVAR [Suspect]
     Indication: HEPATIC NEOPLASM MALIGNANT
     Dosage: 400 MG, BID, ORAL; 200 MG, BID, ORAL
     Route: 048
     Dates: start: 20070829, end: 20070914

REACTIONS (4)
  - BLISTER [None]
  - STOMATITIS [None]
  - SWOLLEN TONGUE [None]
  - TONGUE BLISTERING [None]
